FAERS Safety Report 18113456 (Version 2)
Quarter: 2020Q3

REPORT INFORMATION
  Report Type: Spontaneous
  Country: US (occurrence: US)
  Receive Date: 20200805
  Receipt Date: 20200819
  Transmission Date: 20201103
  Serious: No
  Sender: FDA-Public Use
  Company Number: US-PFIZER INC-2020293519

PATIENT
  Age: 75 Year
  Sex: Female
  Weight: 95.75 kg

DRUGS (1)
  1. DETROL [Suspect]
     Active Substance: TOLTERODINE TARTRATE
     Dosage: 1 MG, DAILY
     Route: 048

REACTIONS (1)
  - Off label use [Unknown]
